FAERS Safety Report 8009152-8 (Version None)
Quarter: 2011Q4

REPORT INFORMATION
  Report Type: 
  Country: None (occurrence: None)
  Receive Date: 20111227
  Receipt Date: 20111215
  Transmission Date: 20120403
  Serious: Yes (Other)
  Sender: FDA-Public Use
  Company Number: PHHY2011MX109689

PATIENT
  Age: 58 Year
  Sex: Female

DRUGS (6)
  1. TEGRETOL [Suspect]
     Route: 048
  2. TEGRETOL [Suspect]
     Indication: EPILEPSY
     Dosage: 4 TABLETS DAILY
     Route: 048
  3. AVELOX [Concomitant]
     Indication: INFLUENZA
     Dosage: 1 DF, DAILY
  4. LEVOFLOXACIN [Concomitant]
     Indication: INFLUENZA
     Dosage: 1 DF, DAILY
  5. FENABOB [Concomitant]
     Indication: NERVOUSNESS
     Dosage: 1 DF, DAILY
     Dates: start: 19530101
  6. CHLORPROMAZINE HCL [Concomitant]
     Indication: NERVOUSNESS
     Dosage: 1.5 DF, DAILY
     Dates: start: 19530101

REACTIONS (4)
  - BRAIN INJURY [None]
  - INFLUENZA [None]
  - CONVULSION [None]
  - BRAIN OEDEMA [None]
